FAERS Safety Report 6816573-5 (Version None)
Quarter: 2010Q3

REPORT INFORMATION
  Report Type: 
  Country: None (occurrence: None)
  Receive Date: 20100706
  Receipt Date: 20100623
  Transmission Date: 20110219
  Serious: Yes (Hospitalization)
  Sender: FDA-Public Use
  Company Number: US-ELI_LILLY_AND_COMPANY-US201004000583

PATIENT
  Sex: Female
  Weight: 82.54 kg

DRUGS (23)
  1. BYETTA [Suspect]
     Indication: TYPE 2 DIABETES MELLITUS
     Dosage: 5 UG, 2/D
     Route: 058
     Dates: start: 20090901, end: 20091001
  2. BYETTA [Suspect]
     Dosage: 10 UG, 2/D
     Route: 058
     Dates: start: 20091001, end: 20091228
  3. BYETTA [Suspect]
     Dosage: 5 UG, 2/D
     Route: 058
     Dates: start: 20100201, end: 20100301
  4. BYETTA [Suspect]
     Dosage: 10 UG, 2/D
     Route: 058
     Dates: start: 20100301
  5. METFORMIN HCL [Concomitant]
     Indication: TYPE 2 DIABETES MELLITUS
     Dosage: 1000 MG, 2/D
     Route: 048
     Dates: start: 20060407
  6. ASPIRIN [Concomitant]
     Indication: PROPHYLAXIS
     Dosage: 81 MG, DAILY (1/D)
     Route: 048
     Dates: start: 20051026
  7. FOLIC ACID [Concomitant]
     Indication: PROPHYLAXIS
     Dosage: 1 MG, DAILY (1/D)
     Route: 048
     Dates: start: 20051026
  8. VITAMIN B [Concomitant]
     Indication: PROPHYLAXIS
     Dosage: 2000 IU, DAILY (1/D)
     Route: 048
  9. NEXIUM [Concomitant]
     Indication: DYSPEPSIA
     Dosage: 40 MG, 2/D
     Route: 048
  10. LISINOPRIL [Concomitant]
     Indication: HYPERTENSION
     Dosage: 2.5 MG, DAILY (1/D)
     Route: 048
  11. MAGNESIUM [Concomitant]
     Dosage: 400 MG, 2/D
     Route: 048
  12. MULTI-VITAMIN [Concomitant]
     Dosage: 1 D/F, DAILY (1/D)
     Route: 048
     Dates: start: 20051026
  13. ACTOS /SCH/ [Concomitant]
     Dates: start: 20070801
  14. ZYRTEC [Concomitant]
     Dosage: 10 MG, DAILY (1/D)
     Route: 048
     Dates: end: 20100323
  15. RHINOCORT [Concomitant]
     Route: 045
     Dates: end: 20010323
  16. PRAVACHOL [Concomitant]
     Dosage: 40 MG, DAILY (1/D)
     Route: 048
  17. FLAXSEED OIL [Concomitant]
     Dosage: 1000 MG, 2/D
     Route: 048
  18. VITAMIN B-12 [Concomitant]
     Dosage: 500 UG, DAILY (1/D)
     Route: 048
  19. CITRACAL + D [Concomitant]
     Dosage: 1 D/F, DAILY (1/D)
     Route: 048
     Dates: start: 20051026
  20. VITAMIN C [Concomitant]
     Dosage: 500 MG, DAILY (1/D)
     Route: 048
     Dates: end: 20081121
  21. VITAMIN B6 [Concomitant]
     Dosage: 200 MG, DAILY (1/D)
     Route: 048
     Dates: end: 20081121
  22. VITAMIN E /001105/ [Concomitant]
     Dosage: 400 U, DAILY (1/D)
     Route: 048
     Dates: start: 20051026
  23. OMEPRAZOLE [Concomitant]
     Dosage: 20 MG, 2/D
     Route: 048
     Dates: start: 20070105

REACTIONS (13)
  - ABDOMINAL PAIN UPPER [None]
  - APPENDICITIS PERFORATED [None]
  - BLISTER [None]
  - BLOOD GLUCOSE INCREASED [None]
  - DYSPEPSIA [None]
  - EXTERNAL EAR PAIN [None]
  - EYE PAIN [None]
  - FOOD POISONING [None]
  - HERPES ZOSTER [None]
  - INFECTION [None]
  - MALAISE [None]
  - PAIN [None]
  - RASH [None]
